FAERS Safety Report 25083404 (Version 4)
Quarter: 2025Q2

REPORT INFORMATION
  Report Type: Report from Study
  Country: BR (occurrence: BR)
  Receive Date: 20250317
  Receipt Date: 20250422
  Transmission Date: 20250716
  Serious: Yes (Hospitalization, Other)
  Sender: NOVARTIS
  Company Number: BR-002147023-NVSC2025BR003657

PATIENT
  Age: 63 Year
  Sex: Female

DRUGS (5)
  1. KISQALI [Suspect]
     Active Substance: RIBOCICLIB SUCCINATE
     Indication: Product used for unknown indication
     Route: 065
  2. KISQALI [Suspect]
     Active Substance: RIBOCICLIB SUCCINATE
     Route: 065
  3. KISQALI [Suspect]
     Active Substance: RIBOCICLIB SUCCINATE
     Route: 065
  4. KISQALI [Suspect]
     Active Substance: RIBOCICLIB SUCCINATE
     Route: 065
  5. LETROZOLE [Suspect]
     Active Substance: LETROZOLE
     Indication: Product used for unknown indication
     Route: 065

REACTIONS (11)
  - Pneumonia aspiration [Recovered/Resolved]
  - Oxygen saturation decreased [Unknown]
  - Pyrexia [Recovered/Resolved]
  - Cardiomegaly [Recovering/Resolving]
  - Acute pulmonary oedema [Recovered/Resolved]
  - Cardiac failure [Unknown]
  - Agitation [Unknown]
  - Sleep disorder [Unknown]
  - Stress [Unknown]
  - Hypertension [Unknown]
  - Carbohydrate antigen 15-3 increased [Recovered/Resolved]

NARRATIVE: CASE EVENT DATE: 20250102
